FAERS Safety Report 11403103 (Version 1)
Quarter: 2015Q3

REPORT INFORMATION
  Report Type: Spontaneous
  Country: US (occurrence: None)
  Receive Date: 20150820
  Receipt Date: 20150820
  Transmission Date: 20151125
  Serious: No
  Sender: FDA-Public Use
  Company Number: None

PATIENT
  Age: 66 Year
  Sex: Female
  Weight: 58.97 kg

DRUGS (2)
  1. PICATO GEL [Suspect]
     Active Substance: INGENOL MEBUTATE
     Indication: PRECANCEROUS SKIN LESION
     Dosage: 2 TUBES, ON THE SKIN (CHEST)
     Dates: start: 20150802, end: 20150803
  2. PICATO GEL [Suspect]
     Active Substance: INGENOL MEBUTATE
     Indication: PROPHYLAXIS
     Dosage: 2 TUBES, ON THE SKIN (CHEST)
     Dates: start: 20150802, end: 20150803

REACTIONS (4)
  - Application site pruritus [None]
  - Blister [None]
  - Application site pain [None]
  - Erythema [None]

NARRATIVE: CASE EVENT DATE: 20150802
